FAERS Safety Report 8300854-2 (Version None)
Quarter: 2012Q2

REPORT INFORMATION
  Report Type: 
  Country: None (occurrence: None)
  Receive Date: 20120419
  Receipt Date: 20120419
  Transmission Date: 20120825
  Serious: Yes (Hospitalization)
  Sender: FDA-Public Use
  Company Number: None

PATIENT
  Sex: Female
  Weight: 42.2 kg

DRUGS (3)
  1. LEUCOVORIN CALCIUM [Suspect]
     Dosage: 1268 MG
  2. BEVACIZUMAB (RHUMAB VEGF) [Suspect]
     Dosage: 496 MG
  3. FLUOROURACIL [Suspect]
     Dosage: 7763 MG

REACTIONS (2)
  - PALMAR-PLANTAR ERYTHRODYSAESTHESIA SYNDROME [None]
  - TOXICITY TO VARIOUS AGENTS [None]
